FAERS Safety Report 6682090-9 (Version None)
Quarter: 2010Q2

REPORT INFORMATION
  Report Type: 
  Country: None (occurrence: None)
  Receive Date: 20100415
  Receipt Date: 20100406
  Transmission Date: 20101027
  Serious: Yes (Hospitalization)
  Sender: FDA-Public Use
  Company Number: US-BIOGENIDEC-2010BI007657

PATIENT
  Age: 52 Year
  Sex: Female

DRUGS (9)
  1. TYSABRI [Suspect]
     Indication: MULTIPLE SCLEROSIS
     Route: 042
     Dates: start: 20070612
  2. AVONEX [Concomitant]
     Indication: MULTIPLE SCLEROSIS
     Route: 030
     Dates: start: 19970601
  3. ALBUTEROL [Concomitant]
  4. BACLOFEN [Concomitant]
  5. TEGRETOL [Concomitant]
     Indication: FACIAL SPASM
  6. BENADRYL [Concomitant]
  7. NEXIUM [Concomitant]
  8. FEXOFENADINE [Concomitant]
  9. NEURONTIN [Concomitant]

REACTIONS (2)
  - MULTIPLE SCLEROSIS [None]
  - TOOTH ABSCESS [None]
